FAERS Safety Report 4372224-3 (Version None)
Quarter: 2004Q2

REPORT INFORMATION
  Report Type: 
  Country: None (occurrence: None)
  Receive Date: 20040602
  Receipt Date: 20040527
  Transmission Date: 20050107
  Serious: Yes (Life-Threatening, Hospitalization)
  Sender: FDA-Public Use
  Company Number: 2004CG00847

PATIENT
  Age: 52 Year
  Sex: Male
  Weight: 68 kg

DRUGS (4)
  1. NEXIUM [Suspect]
     Indication: GASTROOESOPHAGEAL REFLUX DISEASE
     Dosage: 40 MG QD PO
     Route: 048
     Dates: start: 20030425, end: 20040417
  2. PLAVIX [Suspect]
     Indication: ARTERIOPATHIC DISEASE
     Dosage: 1 DF QD PO
     Route: 048
     Dates: start: 20030425, end: 20040510
  3. DEROXAT [Concomitant]
  4. PRAXILENE [Concomitant]

REACTIONS (4)
  - DRUG INEFFECTIVE [None]
  - DUODENAL ULCER PERFORATION [None]
  - PERITONEAL HAEMORRHAGE [None]
  - PNEUMOPERITONEUM [None]
